FAERS Safety Report 19769454 (Version 1)
Quarter: 2021Q3

REPORT INFORMATION
  Report Type: Other
  Country: RU (occurrence: RU)
  Receive Date: 20210831
  Receipt Date: 20210831
  Transmission Date: 20211014
  Serious: Yes (Other)
  Sender: FDA-Public Use
  Company Number: RU-ROCHE-2896560

PATIENT

DRUGS (2)
  1. ERGOFERON (HOMEOPATHICS) [Suspect]
     Active Substance: HOMEOPATHICS
     Indication: INFLUENZA
     Route: 065
  2. OSELTAMIVIR [Suspect]
     Active Substance: OSELTAMIVIR
     Indication: INFLUENZA
     Route: 065

REACTIONS (1)
  - Pneumonia [Unknown]
